FAERS Safety Report 5121078-6 (Version None)
Quarter: 2006Q4

REPORT INFORMATION
  Report Type: 
  Country: None (occurrence: None)
  Receive Date: 20061005
  Receipt Date: 20060927
  Transmission Date: 20070319
  Serious: Yes (Death)
  Sender: FDA-Public Use
  Company Number: JP-BRISTOL-MYERS SQUIBB COMPANY-13525464

PATIENT
  Age: 89 Year
  Sex: Female

DRUGS (2)
  1. VEPESID [Suspect]
     Indication: MYCOSIS FUNGOIDES
     Route: 048
  2. PREDNISOLONE [Concomitant]

REACTIONS (1)
  - PNEUMONIA CYTOMEGALOVIRAL [None]
